FAERS Safety Report 16007867 (Version 1)
Quarter: 2019Q1

REPORT INFORMATION
  Report Type: Spontaneous
  Country: NL (occurrence: NL)
  Receive Date: 20190226
  Receipt Date: 20190226
  Transmission Date: 20190418
  Serious: Yes (Other)
  Sender: FDA-Public Use
  Company Number: NL-MYLANLABS-2019M1016619

PATIENT
  Age: 65 Year
  Sex: Male
  Weight: 81 kg

DRUGS (9)
  1. ZINC CITRATE [Concomitant]
     Active Substance: ZINC CITRATE
     Dosage: UNK
  2. SPIRONOLACTONE. [Suspect]
     Active Substance: SPIRONOLACTONE
     Indication: HYPERTENSION
     Dosage: 1 X DAAGS 25 MG
     Dates: start: 20180725, end: 20180813
  3. SPIRONOLACTONE. [Suspect]
     Active Substance: SPIRONOLACTONE
     Dosage: 12.5 MG PER DAG
     Route: 048
  4. MAGNESIUMOXIDE [Concomitant]
     Active Substance: MAGNESIUM OXIDE
     Dosage: UNK
  5. NOVORAPID [Concomitant]
     Active Substance: INSULIN ASPART
     Dosage: NAAR BEHOEFTE
  6. TOUJEO [Concomitant]
     Active Substance: INSULIN GLARGINE
     Dosage: 44EH PER DAG
  7. CALCIUMCARBONAAT [Concomitant]
     Dosage: UNK
  8. CHOLECALCIFEROL [Concomitant]
     Active Substance: CHOLECALCIFEROL
     Dosage: UNK
  9. SALOFALK                           /00000301/ [Concomitant]
     Active Substance: MESALAMINE
     Dosage: 1000MG/DAG

REACTIONS (2)
  - Hyperglycaemia [Recovered/Resolved]
  - Diabetes mellitus inadequate control [Recovered/Resolved]

NARRATIVE: CASE EVENT DATE: 20180802
